FAERS Safety Report 4925712-2 (Version None)
Quarter: 2006Q1

REPORT INFORMATION
  Report Type: 
  Country: None (occurrence: None)
  Receive Date: 20060228
  Receipt Date: 20050128
  Transmission Date: 20060701
  Serious: No
  Sender: FDA-Public Use
  Company Number: US-GLAXOSMITHKLINE-A0542832A

PATIENT
  Age: 39 Year
  Sex: Female

DRUGS (4)
  1. LAMICTAL [Suspect]
     Indication: DEPRESSION
     Dosage: 100MG PER DAY
     Route: 048
     Dates: start: 20041201, end: 20050101
  2. CLARITIN [Concomitant]
  3. PROTONIX [Concomitant]
  4. DEPAKOTE [Concomitant]

REACTIONS (1)
  - ALOPECIA [None]
